FAERS Safety Report 5477671-4 (Version None)
Quarter: 2007Q4

REPORT INFORMATION
  Report Type: 
  Country: None (occurrence: None)
  Receive Date: 20071001
  Receipt Date: 20071001
  Transmission Date: 20080405
  Serious: Yes (Life-Threatening, Hospitalization, Other)
  Sender: FDA-Public Use
  Company Number: None

PATIENT
  Age: 62 Year
  Sex: Male

DRUGS (11)
  1. FONDAPARINUX GLAXOSMITHKLINE [Suspect]
     Indication: BUDD-CHIARI SYNDROME
     Dosage: DAILY SQ
     Route: 058
  2. FONDAPARINUX GLAXOSMITHKLINE [Suspect]
     Indication: PULMONARY EMBOLISM
     Dosage: DAILY SQ
     Route: 058
  3. URSO 250 [Concomitant]
  4. FLOMAX [Concomitant]
  5. MEPRON [Concomitant]
  6. DYAZIDE [Concomitant]
  7. AMOXICILLIN [Concomitant]
  8. VALTREX [Concomitant]
  9. AMBIEN [Concomitant]
  10. VICODIN [Concomitant]
  11. FOLIC ACID [Concomitant]

REACTIONS (4)
  - ASTHENIA [None]
  - FALL [None]
  - SUBDURAL HAEMATOMA [None]
  - SURGICAL PROCEDURE REPEATED [None]
